FAERS Safety Report 4690628-6 (Version None)
Quarter: 2005Q2

REPORT INFORMATION
  Report Type: 
  Country: None (occurrence: None)
  Receive Date: 20050615
  Receipt Date: 20041124
  Transmission Date: 20051028
  Serious: Yes (Other)
  Sender: FDA-Public Use
  Company Number: US-GLAXOSMITHKLINE-A0535145A

PATIENT
  Age: 52 Year
  Sex: Female
  Weight: 84.1 kg

DRUGS (2)
  1. WELLBUTRIN XL [Suspect]
     Indication: DEPRESSION
     Dosage: 150MG PER DAY
     Dates: start: 20041027
  2. CONCERTA [Concomitant]

REACTIONS (4)
  - CONSTIPATION [None]
  - PROCTALGIA [None]
  - RECTAL HAEMORRHAGE [None]
  - STOOL ANALYSIS ABNORMAL [None]
